FAERS Safety Report 4855898-X (Version None)
Quarter: 2005Q4

REPORT INFORMATION
  Report Type: 
  Country: None (occurrence: None)
  Receive Date: 20051216
  Receipt Date: 20051214
  Transmission Date: 20060501
  Serious: Yes (Other)
  Sender: FDA-Public Use
  Company Number: US-GLAXOSMITHKLINE-A0585843A

PATIENT
  Age: 57 Year
  Sex: Female

DRUGS (9)
  1. AVANDIA [Suspect]
     Dosage: 8MG PER DAY
     Route: 048
     Dates: start: 20050616
  2. AVANDAMET [Suspect]
     Route: 048
     Dates: start: 20050420, end: 20050616
  3. DIOVAN [Concomitant]
  4. LISINOPRIL [Concomitant]
  5. ACCUPRIL [Concomitant]
  6. ZOCOR [Concomitant]
  7. ASPIRIN [Concomitant]
  8. MULTI-VITAMIN [Concomitant]
  9. ADVIL [Concomitant]

REACTIONS (2)
  - ANAEMIA [None]
  - FEELING COLD [None]
